FAERS Safety Report 5341514-X (Version None)
Quarter: 2007Q2

REPORT INFORMATION
  Report Type: 
  Country: None (occurrence: None)
  Receive Date: 20070530
  Receipt Date: 20070530
  Transmission Date: 20071010
  Serious: Yes (Hospitalization)
  Sender: FDA-Public Use
  Company Number: None

PATIENT
  Sex: Male
  Weight: 51.7101 kg

DRUGS (10)
  1. WARFARIN SODIUM [Suspect]
     Indication: ATRIAL FIBRILLATION
     Dosage: 5MG ONCE DAILY ORAL
     Route: 048
  2. WARFARIN SODIUM [Suspect]
     Indication: CARDIAC FAILURE CHRONIC
     Dosage: 5MG ONCE DAILY ORAL
     Route: 048
  3. ZOCOR [Concomitant]
  4. NEXIUM [Concomitant]
  5. PAXIL [Concomitant]
  6. VIT B-12 [Concomitant]
  7. FOLIC ACID [Concomitant]
  8. RESTORIL [Concomitant]
  9. LISINOPRIL [Concomitant]
  10. ADALAT [Concomitant]

REACTIONS (1)
  - SKIN DISCOLOURATION [None]
